FAERS Safety Report 10662183 (Version 4)
Quarter: 2015Q2

REPORT INFORMATION
  Report Type: Report from Study
  Country: FR (occurrence: FR)
  Receive Date: 20141218
  Receipt Date: 20150620
  Transmission Date: 20150821
  Serious: Yes (Other)
  Sender: FDA-Public Use
  Company Number: FR-009507513-1412FRA008357

PATIENT
  Age: 9 Year
  Sex: Female

DRUGS (8)
  1. TEMODAL [Suspect]
     Active Substance: TEMOZOLOMIDE
     Dosage: 250 MG, QD (FOURTH CYCLE)
     Route: 065
     Dates: start: 20140725, end: 20140729
  2. TEMODAL [Suspect]
     Active Substance: TEMOZOLOMIDE
     Dosage: 250 MG, QD (SIXTH CYCLE)
     Route: 065
     Dates: start: 20140926, end: 20140930
  3. BEVACIZUMAB [Suspect]
     Active Substance: BEVACIZUMAB
     Dosage: 400 MG, EVERY 2 WEEKS
     Route: 042
     Dates: start: 20141024, end: 20141110
  4. BEVACIZUMAB [Suspect]
     Active Substance: BEVACIZUMAB
     Dosage: 420 MG, EVERY 2 WEEKS
     Route: 042
     Dates: start: 20140711
  5. BEVACIZUMAB [Suspect]
     Active Substance: BEVACIZUMAB
     Indication: GLIOMA
     Dosage: 412.5 MG, EVERY 2 WEEKS
     Route: 042
     Dates: start: 20140221
  6. BEVACIZUMAB [Suspect]
     Active Substance: BEVACIZUMAB
     Dosage: 420 MG, EVERY 2 WEEKS
     Route: 042
     Dates: start: 20140725
  7. TEMODAL [Suspect]
     Active Substance: TEMOZOLOMIDE
     Indication: GLIOMA
     Dosage: 200 MG, QD (FIRST CYCLE)
     Route: 065
     Dates: start: 20140502, end: 20140506
  8. DOLIPRANE [Concomitant]
     Active Substance: ACETAMINOPHEN
     Dosage: UNK

REACTIONS (1)
  - Proteinuria [Recovered/Resolved]

NARRATIVE: CASE EVENT DATE: 20140725
